FAERS Safety Report 8737917 (Version 2)
Quarter: 2012Q4

REPORT INFORMATION
  Report Type: 
  Country: US (occurrence: US)
  Receive Date: 20120823
  Receipt Date: 20121101
  Transmission Date: 20130627
  Serious: Yes (Hospitalization)
  Sender: FDA-Public Use
  Company Number: US-009507513-1208USA005846

PATIENT
  Sex: Female

DRUGS (6)
  1. VICTRELIS [Suspect]
     Indication: HEPATITIS C
     Dosage: 800 mg, tid
     Route: 048
     Dates: start: 20111125, end: 20120126
  2. PEGASYS [Suspect]
     Dosage: UNK
     Dates: start: 2009
  3. PEGASYS [Suspect]
     Dosage: UNK
     Dates: end: 20120126
  4. COPEGUS [Suspect]
     Dosage: UNK
     Dates: start: 2009
  5. COPEGUS [Suspect]
     Dosage: UNK
     Dates: end: 20120126
  6. INTERFERON (UNSPECIFIED) [Suspect]
     Dosage: UNK
     Dates: start: 2009

REACTIONS (4)
  - Anal abscess [Recovered/Resolved]
  - Subcutaneous abscess [Recovered/Resolved]
  - Anaemia [Recovered/Resolved]
  - Neutropenia [Recovered/Resolved]
